FAERS Safety Report 7594874-3 (Version None)
Quarter: 2011Q2

REPORT INFORMATION
  Report Type: 
  Country: None (occurrence: None)
  Receive Date: 20110615
  Receipt Date: 20100419
  Transmission Date: 20111010
  Serious: Yes (Other)
  Sender: FDA-Public Use
  Company Number: WAES 1002USA00648

PATIENT
  Age: 72 Year
  Sex: Female
  Weight: 87.0906 kg

DRUGS (9)
  1. RHINOCORT [Suspect]
     Dates: start: 20050101, end: 20090101
  2. ASPIRIN [Concomitant]
  3. CIPROFLOXACIN HCL [Concomitant]
  4. NORVASC [Concomitant]
  5. COZAAR [Suspect]
     Indication: HYPERTENSION
     Dosage: 50 MG/DAILY/PO, 100 MG/DAILY/PO, 25 MG/DAILY/PO
     Route: 048
     Dates: start: 20020101, end: 20020101
  6. COZAAR [Suspect]
     Indication: HYPERTENSION
     Dosage: 50 MG/DAILY/PO, 100 MG/DAILY/PO, 25 MG/DAILY/PO
     Route: 048
     Dates: start: 19990101, end: 20020101
  7. COZAAR [Suspect]
     Indication: HYPERTENSION
     Dosage: 50 MG/DAILY/PO, 100 MG/DAILY/PO, 25 MG/DAILY/PO
     Route: 048
     Dates: start: 20020101, end: 20090101
  8. COZAAR [Suspect]
     Indication: HYPERTENSION
     Dosage: 50 MG/DAILY/PO, 100 MG/DAILY/PO, 25 MG/DAILY/PO
     Route: 048
     Dates: start: 20090101
  9. HYDROCHLOROTHIAZIDE [Concomitant]

REACTIONS (13)
  - MALAISE [None]
  - SWELLING [None]
  - CEREBROVASCULAR ACCIDENT [None]
  - SINUSITIS [None]
  - DYSPHONIA [None]
  - ERYTHEMA [None]
  - ALOPECIA [None]
  - SINUS CONGESTION [None]
  - URINE OUTPUT DECREASED [None]
  - INTRAOCULAR PRESSURE INCREASED [None]
  - SKIN DISORDER [None]
  - PAIN [None]
  - ASTHENIA [None]
